FAERS Safety Report 6152228-0 (Version None)
Quarter: 2009Q2

REPORT INFORMATION
  Report Type: 
  Country: None (occurrence: None)
  Receive Date: 20090410
  Receipt Date: 20081217
  Transmission Date: 20091009
  Serious: Yes (Hospitalization)
  Sender: FDA-Public Use
  Company Number: US-ASTRAZENECA-2008UW28149

PATIENT
  Age: 52 Year
  Sex: Female
  Weight: 92 kg

DRUGS (11)
  1. ZESTORETIC [Suspect]
     Indication: HYPERTENSION
     Dosage: 40/25 MG
     Route: 048
     Dates: start: 20030101, end: 20081030
  2. PACLITAXEL [Suspect]
     Indication: BREAST CANCER
     Route: 042
     Dates: start: 20080905, end: 20080101
  3. PACLITAXEL [Suspect]
     Route: 042
     Dates: start: 20080101
  4. BEVACIZUMAB [Suspect]
     Indication: BREAST CANCER
     Route: 042
     Dates: start: 20080905, end: 20080101
  5. BEVACIZUMAB [Suspect]
     Route: 042
     Dates: start: 20080101
  6. OXYCODONE HCL [Concomitant]
  7. LEVOTHYROXINE SODIUM [Concomitant]
     Dates: start: 20080901, end: 20081031
  8. KYTRIL [Concomitant]
     Dates: start: 20080905
  9. DECADRON [Concomitant]
     Dates: start: 20080905
  10. BENADRYL [Concomitant]
     Dates: start: 20080905
  11. ZANTAC [Concomitant]
     Dates: start: 20080905

REACTIONS (4)
  - DEHYDRATION [None]
  - HYPOTENSION [None]
  - SINUS TACHYCARDIA [None]
  - SYNCOPE [None]
